FAERS Safety Report 13194748 (Version 1)
Quarter: 2017Q1

REPORT INFORMATION
  Report Type: Spontaneous
  Country: US (occurrence: US)
  Receive Date: 20170207
  Receipt Date: 20170207
  Transmission Date: 20170428
  Serious: Yes (Hospitalization)
  Sender: FDA-Public Use
  Company Number: PHHY2017US017233

PATIENT
  Age: 32 Year
  Sex: Female

DRUGS (2)
  1. DISULFIRAM. [Interacting]
     Active Substance: DISULFIRAM
     Indication: ALCOHOL USE
     Dosage: 250 MG, QD
     Route: 065
  2. AMPHETAMINE+DEXTROAMPHETAMINE [Suspect]
     Active Substance: AMPHETAMINE ADIPATE\DEXTROAMPHETAMINE
     Indication: ATTENTION DEFICIT/HYPERACTIVITY DISORDER
     Dosage: 30 MG, QD
     Route: 065

REACTIONS (2)
  - Drug interaction [Unknown]
  - Psychotic disorder [Recovered/Resolved]
